FAERS Safety Report 16541802 (Version 4)
Quarter: 2020Q2

REPORT INFORMATION
  Report Type: Report from Study
  Country: DE (occurrence: DE)
  Receive Date: 20190708
  Receipt Date: 20200604
  Transmission Date: 20200713
  Serious: Yes (Death, Hospitalization, Other)
  Sender: FDA-Public Use
  Company Number: PHHY2019DE156007

PATIENT
  Sex: Male
  Weight: 97 kg

DRUGS (8)
  1. PANTOPRAZOL [Concomitant]
     Active Substance: PANTOPRAZOLE SODIUM
     Indication: PRODUCT USED FOR UNKNOWN INDICATION
     Dosage: 20 MG, UNK
     Route: 048
     Dates: start: 20181119
  2. FUROSEMID [Concomitant]
     Active Substance: FUROSEMIDE
     Indication: PRODUCT USED FOR UNKNOWN INDICATION
     Dosage: 20 MG, UNK
     Route: 048
     Dates: start: 2009
  3. MORPHINE [Concomitant]
     Active Substance: MORPHINE
     Indication: PRODUCT USED FOR UNKNOWN INDICATION
     Dosage: UNK
     Route: 065
  4. INSULIN [Concomitant]
     Active Substance: INSULIN NOS
     Indication: PRODUCT USED FOR UNKNOWN INDICATION
     Dosage: UNK
     Route: 065
     Dates: start: 2009
  5. COSENTYX [Suspect]
     Active Substance: SECUKINUMAB
     Indication: PSORIASIS
     Dosage: 300 MG, UNKNOWN
     Route: 058
     Dates: start: 20151015, end: 201904
  6. SPIRONOLACTON [Concomitant]
     Active Substance: SPIRONOLACTONE
     Indication: PRODUCT USED FOR UNKNOWN INDICATION
     Dosage: 50 MG, UNK
     Route: 048
     Dates: start: 2009
  7. HUMIRA [Concomitant]
     Active Substance: ADALIMUMAB
     Indication: PRODUCT USED FOR UNKNOWN INDICATION
     Dosage: 80 MG, UNK
     Route: 058
     Dates: start: 20181025, end: 20181103
  8. ALLOPURINOL. [Concomitant]
     Active Substance: ALLOPURINOL
     Indication: PRODUCT USED FOR UNKNOWN INDICATION
     Dosage: 100 MG, UNK
     Route: 048
     Dates: start: 2009

REACTIONS (40)
  - Psoriasis [Fatal]
  - Vomiting [Recovering/Resolving]
  - Endophthalmitis [Unknown]
  - Anxiety [Not Recovered/Not Resolved]
  - Pancreatic carcinoma metastatic [Not Recovered/Not Resolved]
  - Metastatic neoplasm [Not Recovered/Not Resolved]
  - Pancreatic failure [Unknown]
  - Intraductal papillary mucinous neoplasm [Unknown]
  - Thirst [Unknown]
  - Restlessness [Unknown]
  - Abdominal pain upper [Unknown]
  - Hypokalaemia [Unknown]
  - Coma [Unknown]
  - Hypertension [Unknown]
  - Diarrhoea [Unknown]
  - Lung neoplasm malignant [Not Recovered/Not Resolved]
  - Nausea [Not Recovered/Not Resolved]
  - Acute kidney injury [Unknown]
  - Chronic kidney disease [Unknown]
  - Squamous cell carcinoma [Unknown]
  - Anaemia of malignant disease [Unknown]
  - Hiatus hernia [Unknown]
  - Hyperuricaemia [Unknown]
  - Renal cyst [Unknown]
  - Fatigue [Unknown]
  - Blood glucose increased [Recovering/Resolving]
  - Asthenia [Unknown]
  - Chromaturia [Unknown]
  - Hypoalbuminaemia [Not Recovered/Not Resolved]
  - Pancreatic carcinoma [Unknown]
  - Constipation [Unknown]
  - Initial insomnia [Unknown]
  - Confusional state [Unknown]
  - Dehydration [Unknown]
  - Malnutrition [Not Recovered/Not Resolved]
  - Chronic gastritis [Unknown]
  - Depression [Unknown]
  - General physical health deterioration [Unknown]
  - Bile duct stenosis [Unknown]
  - Decreased appetite [Unknown]

NARRATIVE: CASE EVENT DATE: 201901
